FAERS Safety Report 9382360 (Version 1)
Quarter: 2013Q3

REPORT INFORMATION
  Report Type: Spontaneous
  Country: US (occurrence: US)
  Receive Date: 20130703
  Receipt Date: 20130703
  Transmission Date: 20140515
  Serious: Yes (Hospitalization, Other)
  Sender: FDA-Public Use
  Company Number: US-BRISTOL-MYERS SQUIBB COMPANY-19040187

PATIENT
  Age: 54 Year
  Sex: Female
  Weight: 65.8 kg

DRUGS (2)
  1. ERBITUX [Suspect]
     Indication: COLON CANCER
     Dosage: REG 2: 200MG,VIAL,C1200191:AUG2015:EXP DT
     Dates: start: 201212
  2. IRINOTECAN [Suspect]
     Indication: COLON CANCER

REACTIONS (3)
  - Malignant neoplasm progression [Unknown]
  - Rectal haemorrhage [Unknown]
  - Weight decreased [Unknown]
